FAERS Safety Report 11518834 (Version 2)
Quarter: 2015Q3

REPORT INFORMATION
  Report Type: Spontaneous
  Country: US (occurrence: US)
  Receive Date: 20150917
  Receipt Date: 20150922
  Transmission Date: 20151125
  Serious: Yes (Other)
  Sender: FDA-Public Use
  Company Number: US-PFIZER INC-2015305591

PATIENT
  Age: 47 Year
  Sex: Female

DRUGS (1)
  1. LYRICA [Suspect]
     Active Substance: PREGABALIN
     Indication: FIBROMYALGIA
     Dosage: 100MG  TWICE A DAY BY MOUTH
     Route: 048
     Dates: start: 201212

REACTIONS (4)
  - Pharyngeal oedema [Recovered/Resolved]
  - Suicidal ideation [Unknown]
  - Pain [Unknown]
  - Drug ineffective [Unknown]
